FAERS Safety Report 5250471-6 (Version None)
Quarter: 2007Q1

REPORT INFORMATION
  Report Type: 
  Country: None (occurrence: None)
  Receive Date: 20070228
  Receipt Date: 20060420
  Transmission Date: 20070707
  Serious: No
  Sender: FDA-Public Use
  Company Number: US-GLAXOSMITHKLINE-A0602624A

PATIENT
  Age: 12 Year
  Sex: Female

DRUGS (3)
  1. LAMICTAL [Suspect]
     Indication: BIPOLAR DISORDER
     Dosage: 25MG PER DAY
     Route: 048
     Dates: start: 20060415, end: 20060418
  2. RISPERDAL [Concomitant]
  3. PROZAC [Concomitant]

REACTIONS (4)
  - EYELIDS PRURITUS [None]
  - MYALGIA [None]
  - PRURITUS GENERALISED [None]
  - RASH [None]
